FAERS Safety Report 11647992 (Version 1)
Quarter: 2015Q4

REPORT INFORMATION
  Report Type: Spontaneous
  Country: CA (occurrence: CA)
  Receive Date: 20151021
  Receipt Date: 20151021
  Transmission Date: 20160304
  Serious: No
  Sender: FDA-Public Use
  Company Number: CA-MISSION PHARMACAL COMPANY-1043227

PATIENT
  Age: 30 Year
  Sex: Female

DRUGS (5)
  1. UROCIT-K [Suspect]
     Active Substance: POTASSIUM CITRATE
     Indication: HYPERCALCIURIA
     Route: 065
     Dates: start: 20141003, end: 20141110
  2. TRAZODONE [Concomitant]
     Active Substance: TRAZODONE HYDROCHLORIDE
     Route: 065
  3. HYDROCHLOROTHIAZIDE. [Concomitant]
     Active Substance: HYDROCHLOROTHIAZIDE
     Route: 065
  4. MANIX 75 MG [Concomitant]
     Route: 065
  5. FOLIC ACID. [Concomitant]
     Active Substance: FOLIC ACID
     Route: 065

REACTIONS (1)
  - Medication residue present [Unknown]

NARRATIVE: CASE EVENT DATE: 20141110
